FAERS Safety Report 7690388-0 (Version None)
Quarter: 2011Q3

REPORT INFORMATION
  Report Type: 
  Country: None (occurrence: None)
  Receive Date: 20110812
  Receipt Date: 20110729
  Transmission Date: 20111222
  Serious: Yes (Hospitalization)
  Sender: FDA-Public Use
  Company Number: FK201101518

PATIENT
  Age: 68 Year
  Sex: Male

DRUGS (11)
  1. DEXAMETHASONE [Concomitant]
  2. APREPITANT (APREPITANT) (APREPITANT) [Concomitant]
  3. PROPRANOLOL [Concomitant]
  4. FLUCONAZOL (FLUCONAZOL) (FLUCONAZOL) [Concomitant]
  5. LEVOTHYROXINE (LEVOTHYROXINE) (LEVOTHYROXINE) [Concomitant]
  6. TEMAZEPAM [Concomitant]
  7. PROCHLORPERAZINE (PROCHLORPERAZINE) (PROCHLORPERAZINE) [Concomitant]
  8. DACARBAZINE [Suspect]
     Indication: MALIGNANT MELANOMA
     Dosage: 1000 MG, 1 IN 3 WK, INTRAVENOUS (NOT OTHERWISE SPECIFIED)
     Route: 042
     Dates: start: 20100909, end: 20101002
  9. ONDANSETRON [Concomitant]
  10. LORAZEPAM [Concomitant]
  11. ZOLPIDEM (ZOLPIDEM) (ZOLPIDEM) [Concomitant]

REACTIONS (6)
  - BLOOD GLUCOSE INCREASED [None]
  - APHASIA [None]
  - CEREBRAL ISCHAEMIA [None]
  - LYMPHOCYTE COUNT DECREASED [None]
  - PLATELET COUNT DECREASED [None]
  - DYSARTHRIA [None]
